FAERS Safety Report 12252401 (Version 1)
Quarter: 2016Q2

REPORT INFORMATION
  Report Type: Spontaneous
  Country: US (occurrence: US)
  Receive Date: 20160411
  Receipt Date: 20160411
  Transmission Date: 20160815
  Serious: Yes (Other)
  Sender: FDA-Public Use
  Company Number: US-HOSPIRA-3241941

PATIENT
  Age: 20 Year
  Sex: Male

DRUGS (3)
  1. PACLITAXEL. [Suspect]
     Active Substance: PACLITAXEL
     Indication: CHEMOTHERAPY
  2. GEMCITABINE HYDROCHLORIDE. [Suspect]
     Active Substance: GEMCITABINE HYDROCHLORIDE
     Indication: CHEMOTHERAPY
     Dosage: DAYS 1, 8 AND 15
  3. CARBOPLATIN. [Suspect]
     Active Substance: CARBOPLATIN
     Indication: CHEMOTHERAPY
     Dosage: 4 MG/ML/MIN ON DAY 1

REACTIONS (6)
  - Renal impairment [Unknown]
  - Vertigo [Unknown]
  - Ototoxicity [Unknown]
  - Neutropenia [Unknown]
  - Tinnitus [Unknown]
  - Colitis [Unknown]
